FAERS Safety Report 13611412 (Version 1)
Quarter: 2017Q2

REPORT INFORMATION
  Report Type: Spontaneous
  Country: US (occurrence: US)
  Receive Date: 20170605
  Receipt Date: 20170605
  Transmission Date: 20170830
  Serious: No
  Sender: FDA-Public Use
  Company Number: US-PFIZER INC-2017242666

PATIENT
  Age: 46 Year
  Sex: Female

DRUGS (4)
  1. PROPANOLOL HCL [Suspect]
     Active Substance: PROPRANOLOL HYDROCHLORIDE
     Indication: TACHYCARDIA
     Dosage: UNK
     Dates: start: 201108, end: 201108
  2. TAPAZOLE [Concomitant]
     Active Substance: METHIMAZOLE
     Indication: HYPERTHYROIDISM
     Dosage: UNK, ONLY TAKING 5MG OR LESS
     Dates: start: 201108
  3. TAPAZOLE [Concomitant]
     Active Substance: METHIMAZOLE
     Indication: BASEDOW^S DISEASE
     Dosage: 2.5 MG, WEEKLY (AT REMISSION)
  4. DIPHENHYDRAMINE. [Concomitant]
     Active Substance: DIPHENHYDRAMINE
     Indication: DRUG HYPERSENSITIVITY
     Dosage: 50 MG, DAILY, (2) 25 MG CAPSULES, EVERY NIGHT
     Dates: end: 201302

REACTIONS (4)
  - Hypersensitivity [Unknown]
  - Rash [Unknown]
  - Swelling [Unknown]
  - Pruritus [Unknown]

NARRATIVE: CASE EVENT DATE: 201108
